FAERS Safety Report 6014159-6 (Version None)
Quarter: 2008Q4

REPORT INFORMATION
  Report Type: 
  Country: None (occurrence: None)
  Receive Date: 20081219
  Receipt Date: 20080123
  Transmission Date: 20090506
  Serious: No
  Sender: FDA-Public Use
  Company Number: A0704902A

PATIENT
  Age: 74 Year
  Sex: Male

DRUGS (14)
  1. AVODART [Suspect]
     Indication: BENIGN PROSTATIC HYPERPLASIA
     Dosage: .5MG PER DAY
     Route: 048
     Dates: start: 20080109, end: 20080120
  2. METFORMIN HCL [Concomitant]
  3. COREG [Concomitant]
  4. AMIODARONE HCL [Concomitant]
  5. ASPIRIN [Concomitant]
  6. LASIX [Concomitant]
  7. LISINOPRIL [Concomitant]
  8. CENTRUM [Concomitant]
  9. LUTEIN [Concomitant]
  10. BIOTIN [Concomitant]
  11. IRON [Concomitant]
  12. WARFARIN SODIUM [Concomitant]
  13. NORVASC [Concomitant]
  14. C-PAP [Concomitant]

REACTIONS (4)
  - CONSTIPATION [None]
  - DYSURIA [None]
  - ILL-DEFINED DISORDER [None]
  - MICTURITION URGENCY [None]
